FAERS Safety Report 25268573 (Version 1)
Quarter: 2025Q2

REPORT INFORMATION
  Report Type: Spontaneous
  Country: US (occurrence: None)
  Receive Date: 20250503
  Receipt Date: 20250503
  Transmission Date: 20250717
  Serious: Yes (Life-Threatening, Hospitalization, Disabling)
  Sender: FDA-CTU
  Company Number: None

PATIENT
  Age: 63 Year
  Sex: Female
  Weight: 51.75 kg

DRUGS (14)
  1. RECLAST [Suspect]
     Active Substance: ZOLEDRONIC ACID
     Indication: Osteoporosis
     Route: 042
     Dates: start: 20200101, end: 20240215
  2. ASMANEX [Concomitant]
     Active Substance: MOMETASONE FUROATE
  3. RITUXAN [Concomitant]
     Active Substance: RITUXIMAB
  4. ROSUVASTATIN [Concomitant]
     Active Substance: ROSUVASTATIN
  5. ESCITALOPRAM [Concomitant]
     Active Substance: ESCITALOPRAM OXALATE
  6. PANTOPRAZOLE [Concomitant]
     Active Substance: PANTOPRAZOLE
  7. Leothyroxine [Concomitant]
  8. PREDNISONE [Concomitant]
     Active Substance: PREDNISONE
  9. CALCIUM [Concomitant]
     Active Substance: CALCIUM
  10. VITAMIN D3 [Concomitant]
     Active Substance: CHOLECALCIFEROL
  11. PEPCID [Concomitant]
     Active Substance: FAMOTIDINE
  12. MELATONIN [Concomitant]
     Active Substance: MELATONIN
  13. FOLIC ACID [Concomitant]
     Active Substance: FOLIC ACID
  14. ASPIRIN [Concomitant]
     Active Substance: ASPIRIN

REACTIONS (3)
  - Fall [None]
  - Femur fracture [None]
  - Walking aid user [None]

NARRATIVE: CASE EVENT DATE: 20240404
